FAERS Safety Report 5400182-9 (Version None)
Quarter: 2007Q3

REPORT INFORMATION
  Report Type: 
  Country: None (occurrence: None)
  Receive Date: 20070730
  Receipt Date: 20070718
  Transmission Date: 20080115
  Serious: Yes (Other)
  Sender: FDA-Public Use
  Company Number: ES-AMGEN-UK233781

PATIENT
  Age: 36 Year

DRUGS (5)
  1. NEUPOGEN [Suspect]
     Indication: PRE-EXISTING DISEASE
     Route: 058
  2. ARANESP [Suspect]
     Indication: ANAEMIA
     Route: 058
  3. PEGASYS [Suspect]
  4. COPEGUS [Suspect]
  5. IRON [Concomitant]
     Route: 048

REACTIONS (4)
  - HAEMOGLOBIN DECREASED [None]
  - PANCYTOPENIA [None]
  - PLATELET COUNT DECREASED [None]
  - WHITE BLOOD CELL COUNT DECREASED [None]
